FAERS Safety Report 9527637 (Version 1)
Quarter: 2013Q3

REPORT INFORMATION
  Report Type: Spontaneous
  Country: US (occurrence: None)
  Receive Date: 20130913
  Receipt Date: 20130913
  Transmission Date: 20140515
  Serious: Yes (Disabling)
  Sender: FDA-Public Use
  Company Number: None

PATIENT
  Age: 79 Year
  Sex: Female
  Weight: 68.04 kg

DRUGS (12)
  1. SIMVASTATIN [Suspect]
     Indication: BLOOD CHOLESTEROL INCREASED
     Dates: start: 20120201, end: 20120301
  2. SERTRALINE [Concomitant]
  3. CLOPIDAGEROL [Concomitant]
  4. AMLOPIDINE BRSYLATE [Concomitant]
  5. METOPROLOL [Concomitant]
  6. VALSARTAN [Concomitant]
  7. MELOXICAM [Concomitant]
  8. ASPIRIN [Concomitant]
  9. MELATONIN [Concomitant]
  10. MULTI-VITAMIN [Concomitant]
  11. FISH OIL [Concomitant]
  12. DULCOLAX (BISACODYL) [Concomitant]

REACTIONS (1)
  - Pain in extremity [None]
